FAERS Safety Report 13194196 (Version 1)
Quarter: 2017Q1

REPORT INFORMATION
  Report Type: Spontaneous
  Country: NL (occurrence: NL)
  Receive Date: 20170207
  Receipt Date: 20170207
  Transmission Date: 20170428
  Serious: Yes (Death, Other)
  Sender: FDA-Public Use
  Company Number: NL-GLAXOSMITHKLINE-NL2017GSK013074

PATIENT
  Age: 2 Month
  Sex: Male
  Weight: 5 kg

DRUGS (19)
  1. FLOLAN [Suspect]
     Active Substance: EPOPROSTENOL SODIUM
     Indication: PULMONARY HYPERTENSION
     Dosage: 500 MG, UNK
     Route: 042
     Dates: start: 20170104, end: 20170121
  2. CHLORAL HYDRATE [Concomitant]
     Active Substance: CHLORAL HYDRATE
  3. PHENOBARBITAL. [Concomitant]
     Active Substance: PHENOBARBITAL
  4. PHYTOMENADIONE [Concomitant]
     Active Substance: PHYTONADIONE
  5. FENTANYL. [Concomitant]
     Active Substance: FENTANYL
  6. MILRINONE [Concomitant]
     Active Substance: MILRINONE
  7. ROCURONIUM [Concomitant]
     Active Substance: ROCURONIUM BROMIDE
  8. BOSENTAN. [Concomitant]
     Active Substance: BOSENTAN
  9. POTASSIUM CHLORIDE. [Concomitant]
     Active Substance: POTASSIUM CHLORIDE
  10. MORPHINE [Concomitant]
     Active Substance: MORPHINE
  11. HYDROCHLOROTHIAZIDE. [Concomitant]
     Active Substance: HYDROCHLOROTHIAZIDE
  12. SPIRONOLACTONE. [Concomitant]
     Active Substance: SPIRONOLACTONE
  13. PARACETAMOL [Concomitant]
     Active Substance: ACETAMINOPHEN
  14. MIDAZOLAM [Concomitant]
     Active Substance: MIDAZOLAM HYDROCHLORIDE
  15. HYDROCORTISONE. [Concomitant]
     Active Substance: HYDROCORTISONE
  16. MAGNESIUM SULFATE. [Concomitant]
     Active Substance: MAGNESIUM SULFATE
  17. FUROSEMIDE. [Concomitant]
     Active Substance: FUROSEMIDE
  18. NOREPINEPHRINE [Concomitant]
     Active Substance: NOREPINEPHRINE\NOREPINEPHRINE BITARTRATE
  19. SUCRALFATE. [Concomitant]
     Active Substance: SUCRALFATE

REACTIONS (3)
  - Hypotension [Unknown]
  - Tachycardia [Unknown]
  - Pulmonary hypertension [Fatal]

NARRATIVE: CASE EVENT DATE: 201701
